FAERS Safety Report 19076444 (Version 1)
Quarter: 2021Q1

REPORT INFORMATION
  Report Type: Report from Study
  Country: None (occurrence: US)
  Receive Date: 20210331
  Receipt Date: 20210331
  Transmission Date: 20210420
  Serious: Yes (Other)
  Sender: FDA-Public Use
  Company Number: US-ABBVIE-21K-163-3831479-00

PATIENT
  Sex: Male

DRUGS (2)
  1. REMICADE [Suspect]
     Active Substance: INFLIXIMAB
     Indication: PRODUCT USED FOR UNKNOWN INDICATION
     Route: 065
  2. HUMIRA [Suspect]
     Active Substance: ADALIMUMAB
     Indication: COLITIS ULCERATIVE
     Dosage: CITRATE FREE
     Route: 058

REACTIONS (13)
  - Alcohol rehabilitation [Recovering/Resolving]
  - Arthralgia [Unknown]
  - Drug hypersensitivity [Recovered/Resolved]
  - Diarrhoea [Recovered/Resolved]
  - Mental disorder [Not Recovered/Not Resolved]
  - Wisdom teeth removal [Unknown]
  - Hypoacusis [Not Recovered/Not Resolved]
  - Inflammation [Recovered/Resolved]
  - Post procedural complication [Recovered/Resolved]
  - Diarrhoea [Recovered/Resolved]
  - Device leakage [Recovering/Resolving]
  - Adverse food reaction [Unknown]
  - Rash papular [Not Recovered/Not Resolved]

NARRATIVE: CASE EVENT DATE: 2011
